FAERS Safety Report 7716903-6 (Version None)
Quarter: 2011Q3

REPORT INFORMATION
  Report Type: 
  Country: None (occurrence: None)
  Receive Date: 20110829
  Receipt Date: 20110823
  Transmission Date: 20111222
  Serious: Yes (Death, Life-Threatening, Other)
  Sender: FDA-Public Use
  Company Number: IN-ROXANE LABORATORIES, INC.-2011-RO-01183RO

PATIENT
  Age: 47 Year
  Sex: Female

DRUGS (5)
  1. FLUOROURACIL [Suspect]
     Indication: BREAST CANCER
  2. PACLITAXEL [Suspect]
     Indication: BREAST CANCER
  3. TAMOXIFEN CITRATE [Suspect]
     Indication: BREAST CANCER
     Route: 048
  4. EPIRUBICIN [Suspect]
     Indication: BREAST CANCER
  5. CYCLOPHOSPHAMIDE [Suspect]
     Indication: BREAST CANCER

REACTIONS (3)
  - MYELODYSPLASTIC SYNDROME [None]
  - DEATH [None]
  - REFRACTORY ANAEMIA [None]
